FAERS Safety Report 7576567-1 (Version None)
Quarter: 2011Q2

REPORT INFORMATION
  Report Type: 
  Country: None (occurrence: None)
  Receive Date: 20110628
  Receipt Date: 20110609
  Transmission Date: 20111010
  Serious: Yes (Life-Threatening, Other)
  Sender: FDA-Public Use
  Company Number: US-BAYER-201040907NA

PATIENT
  Age: 32 Year
  Sex: Female
  Weight: 81.179 kg

DRUGS (12)
  1. HYDROCODONE [Concomitant]
  2. VICODIN [Concomitant]
     Indication: PAIN
     Dosage: UNK
     Dates: start: 20040930
  3. LEVAQUIN [Concomitant]
     Indication: PYELONEPHRITIS
     Dosage: 500 MG, QD
  4. GLUCOPHAGE [Concomitant]
     Dosage: UNK UNK, BID
  5. AZITHROMYCIN [Concomitant]
     Dosage: 250 MG, UNK
  6. HYDROXYZINE HCL [Concomitant]
     Dosage: 25 MG, UNK
  7. YASMIN [Suspect]
     Indication: MENSTRUAL CYCLE MANAGEMENT
  8. YASMIN [Suspect]
     Indication: ORAL CONTRACEPTION
     Dosage: UNK UNK, QD
     Route: 048
     Dates: start: 20040701, end: 20041201
  9. METFORMIN HCL [Concomitant]
     Dosage: 500 MG, UNK
  10. MEDROXYPROGESTERONE ACETATE [Concomitant]
     Dosage: 10 MG, UNK
  11. DEXPAK [Concomitant]
     Dosage: 1.5 MG, UNK
  12. PROVERA [Concomitant]
     Dosage: UNK
     Dates: start: 20041207

REACTIONS (7)
  - GALLBLADDER DISORDER [None]
  - PAIN [None]
  - FATIGUE [None]
  - ASTHENIA [None]
  - CHOLELITHIASIS [None]
  - CHOLECYSTITIS CHRONIC [None]
  - ORGAN FAILURE [None]
